FAERS Safety Report 8915348 (Version 1)
Quarter: 2012Q4

REPORT INFORMATION
  Report Type: 
  Country: IT (occurrence: IT)
  Receive Date: 20121116
  Receipt Date: 20121116
  Transmission Date: 20130627
  Serious: Yes (Life-Threatening)
  Sender: FDA-Public Use
  Company Number: IT-TEVA-369275ISR

PATIENT
  Age: 82 Year
  Sex: Female

DRUGS (6)
  1. OLANZAPINA TEVA [Suspect]
     Indication: CONDUCT DISORDER
     Dosage: 10 Milligram Daily;
     Route: 048
     Dates: start: 20120502, end: 20120930
  2. LANSOPRAZOLO [Concomitant]
     Dosage: 30 Milligram Daily;
  3. DIURESIX [Concomitant]
     Dosage: 10 Milligram Daily;
  4. DEPONIT [Concomitant]
     Dosage: 15 Milligram Daily;
  5. CONGESCOR [Concomitant]
     Dosage: 2.5 Milligram Daily;
     Route: 048
  6. CRESTOR [Concomitant]
     Dosage: 20 Milligram Daily;

REACTIONS (5)
  - General physical health deterioration [Recovering/Resolving]
  - Dyspnoea [Recovering/Resolving]
  - Hyperhidrosis [Recovering/Resolving]
  - Loss of consciousness [Recovering/Resolving]
  - Dysarthria [Recovering/Resolving]
